FAERS Safety Report 7713745-2 (Version None)
Quarter: 2011Q3

REPORT INFORMATION
  Report Type: 
  Country: None (occurrence: None)
  Receive Date: 20110826
  Receipt Date: 20110819
  Transmission Date: 20111222
  Serious: Yes (Other)
  Sender: FDA-Public Use
  Company Number: GB-PERRIGO-11GB006838

PATIENT
  Age: 32 Year
  Sex: Female

DRUGS (2)
  1. CETIRIZINE HCL [Suspect]
     Dosage: 10 MG, QD
     Route: 048
  2. CETIRIZINE HCL [Suspect]
     Indication: MECHANICAL URTICARIA
     Dosage: 10 MG, QD
     Route: 048

REACTIONS (7)
  - MUCOSAL INFLAMMATION [None]
  - ORAL PAIN [None]
  - DRUG ERUPTION [None]
  - OEDEMA MOUTH [None]
  - LIP SWELLING [None]
  - MOUTH ULCERATION [None]
  - OROPHARYNGEAL BLISTERING [None]
